FAERS Safety Report 16684907 (Version 1)
Quarter: 2019Q3

REPORT INFORMATION
  Report Type: Report from Study
  Country: CN (occurrence: CN)
  Receive Date: 20190808
  Receipt Date: 20190808
  Transmission Date: 20191004
  Serious: Yes (Life-Threatening)
  Sender: FDA-Public Use
  Company Number: CN-INCYTE CORPORATION-2019IN007859

PATIENT

DRUGS (1)
  1. JAKAVI [Suspect]
     Active Substance: RUXOLITINIB
     Indication: MYELOFIBROSIS
     Dosage: 5 MG, BID
     Route: 048
     Dates: start: 20190420, end: 201906

REACTIONS (2)
  - Myelofibrosis [Not Recovered/Not Resolved]
  - Acute leukaemia [Unknown]

NARRATIVE: CASE EVENT DATE: 201906
